FAERS Safety Report 6309189-0 (Version None)
Quarter: 2009Q3

REPORT INFORMATION
  Report Type: 
  Country: None (occurrence: None)
  Receive Date: 20090814
  Receipt Date: 20090713
  Transmission Date: 20100115
  Serious: No
  Sender: FDA-Public Use
  Company Number: A0796647A

PATIENT
  Age: 75 Year
  Sex: Female

DRUGS (6)
  1. COREG CR [Suspect]
     Indication: DRUG USE FOR UNKNOWN INDICATION
     Dosage: 20MG PER DAY
     Route: 048
     Dates: start: 20090601
  2. AMLODIPINE [Concomitant]
  3. DIOVAN [Concomitant]
  4. JANUVIA [Concomitant]
  5. GLIPIZIDE [Concomitant]
  6. LOVASTATIN [Concomitant]

REACTIONS (3)
  - DYSPNOEA [None]
  - MYALGIA [None]
  - PAIN IN EXTREMITY [None]
